FAERS Safety Report 4274377-4 (Version None)
Quarter: 2004Q1

REPORT INFORMATION
  Report Type: 
  Country: None (occurrence: None)
  Receive Date: 20040115
  Receipt Date: 20040105
  Transmission Date: 20041129
  Serious: Yes (Death)
  Sender: FDA-Public Use
  Company Number: 7042

PATIENT
  Age: 69 Year
  Sex: Female

DRUGS (8)
  1. CYTARABINE [Suspect]
     Dosage: 7 G TOTAL, IV
     Route: 042
     Dates: start: 20031123, end: 20031123
  2. METHOTREXATE [Concomitant]
     Dosage: 5.9 G TOTAL, IV
     Route: 042
     Dates: start: 20031122, end: 20031122
  3. PREDNISONE [Concomitant]
  4. FILGRASTIM [Concomitant]
  5. ALPRAZOLAM [Concomitant]
  6. LEVOFLOXACIN [Concomitant]
  7. LANSOPRAZOLE [Concomitant]
  8. PHENOBARBITAL TAB [Concomitant]

REACTIONS (1)
  - HEPATITIS ACUTE [None]
